FAERS Safety Report 21358414 (Version 1)
Quarter: 2022Q3

REPORT INFORMATION
  Report Type: Spontaneous
  Country: JP (occurrence: JP)
  Receive Date: 20220921
  Receipt Date: 20220921
  Transmission Date: 20221027
  Serious: Yes (Other)
  Sender: FDA-Public Use
  Company Number: JP-BRISTOL-MYERS SQUIBB COMPANY-2022-027547

PATIENT
  Age: 74 Year
  Sex: Female
  Weight: 38 kg

DRUGS (4)
  1. ABRAXANE [Suspect]
     Active Substance: PACLITAXEL
     Indication: Pancreatic carcinoma metastatic
     Route: 041
     Dates: start: 20211209, end: 20211209
  2. GEMZAR [Suspect]
     Active Substance: GEMCITABINE HYDROCHLORIDE
     Indication: Pancreatic carcinoma metastatic
     Dosage: 1) 1000 MILLIGRAM(S) (1000 MILLIGRAM(S), 1 IN 1 DAY)
     Route: 041
     Dates: start: 20211209, end: 20211209
  3. DECADRON [Concomitant]
     Active Substance: DEXAMETHASONE
     Indication: Product used for unknown indication
     Dosage: 1) 9.9 MILLIGRAM(S) (9.9 MILLIGRAM(S), 1 IN 1 DAY)
     Route: 041
     Dates: start: 20210913, end: 20211209
  4. PALONOSETRON [Concomitant]
     Active Substance: PALONOSETRON
     Indication: Product used for unknown indication
     Dosage: 1) 0.75 MILLIGRAM(S) (0.75 MILLIGRAM(S), 1 IN 1 DAY)
     Route: 041
     Dates: start: 20211209, end: 20211209

REACTIONS (1)
  - Erythema multiforme [Recovered/Resolved]

NARRATIVE: CASE EVENT DATE: 20211210
